FAERS Safety Report 6755877-1 (Version None)
Quarter: 2010Q2

REPORT INFORMATION
  Report Type: 
  Country: None (occurrence: None)
  Receive Date: 20100603
  Receipt Date: 20100603
  Transmission Date: 20101027
  Serious: No
  Sender: FDA-Public Use
  Company Number: None

PATIENT

DRUGS (2)
  1. CREST PRO-HEALTH MOUTHWASH PROCTER + GAMBLE [Suspect]
     Indication: DENTAL DISORDER PROPHYLAXIS
     Dosage: NORMAL RECOMMENDED DAILY DENTAL
     Route: 004
     Dates: start: 20100501, end: 20100601
  2. COLGATE TOTAL [Suspect]
     Indication: DENTAL DISORDER PROPHYLAXIS
     Dosage: NORMAL RECOMMENDED DAILY DENTAL
     Route: 004
     Dates: start: 20100501, end: 20100601

REACTIONS (2)
  - DRUG INTERACTION [None]
  - PRODUCT TASTE ABNORMAL [None]
